FAERS Safety Report 12388722 (Version 1)
Quarter: 2016Q2

REPORT INFORMATION
  Report Type: Spontaneous
  Country: DK (occurrence: DK)
  Receive Date: 20160520
  Receipt Date: 20160520
  Transmission Date: 20160815
  Serious: Yes (Hospitalization)
  Sender: FDA-Public Use
  Company Number: DK-ASTRAZENECA-2016SE52163

PATIENT
  Age: 15787 Day
  Sex: Male

DRUGS (5)
  1. TILADE [Concomitant]
     Active Substance: NEDOCROMIL SODIUM
     Indication: ASTHMA
     Route: 055
     Dates: start: 20080109, end: 20080827
  2. BRICANYL [Concomitant]
     Active Substance: TERBUTALINE SULFATE
     Indication: ASTHMA
     Dosage: AS NEEDED
  3. SYMBICORT [Suspect]
     Active Substance: BUDESONIDE\FORMOTEROL FUMARATE DIHYDRATE
     Indication: ASTHMA
     Dosage: 9+320 MIKROGRAM/DOSE, 2 INHALATIONS THREE TIMES A DAY
     Route: 055
     Dates: start: 2007, end: 20070822
  4. PREDNISOLON [Suspect]
     Active Substance: PREDNISOLONE
     Indication: ASTHMA
     Route: 048
     Dates: start: 20080827, end: 20080905
  5. PULMICORT TURBUHALER [Suspect]
     Active Substance: BUDESONIDE
     Dosage: 1 INHALATION 2 TIMES DAILY
     Route: 055

REACTIONS (4)
  - Fracture [Unknown]
  - Hip fracture [Recovered/Resolved]
  - Fall [Unknown]
  - Osteoporosis [Not Recovered/Not Resolved]

NARRATIVE: CASE EVENT DATE: 20100905
